FAERS Safety Report 7191831-6 (Version None)
Quarter: 2010Q4

REPORT INFORMATION
  Report Type: 
  Country: None (occurrence: None)
  Receive Date: 20101223
  Receipt Date: 20101210
  Transmission Date: 20110411
  Serious: Yes (Other)
  Sender: FDA-Public Use
  Company Number: PHHY2010AU84148

PATIENT
  Sex: Female

DRUGS (1)
  1. SANDOSTATIN LAR [Suspect]
     Indication: METASTASES TO LIVER
     Dosage: 40 MG, UNK
     Dates: start: 20070101

REACTIONS (9)
  - DIARRHOEA [None]
  - FLUSHING [None]
  - HEPATIC FUNCTION ABNORMAL [None]
  - MALIGNANT NEOPLASM PROGRESSION [None]
  - METASTATIC CARCINOID TUMOUR [None]
  - MONOCYTE COUNT ABNORMAL [None]
  - NEUTROPHIL COUNT DECREASED [None]
  - NODULE [None]
  - THERAPEUTIC EMBOLISATION [None]
